FAERS Safety Report 5300943-0 (Version None)
Quarter: 2007Q2

REPORT INFORMATION
  Report Type: 
  Country: None (occurrence: None)
  Receive Date: 20070418
  Receipt Date: 20070413
  Transmission Date: 20071010
  Serious: Yes (Other)
  Sender: FDA-Public Use
  Company Number: GBWYE466113APR07

PATIENT

DRUGS (1)
  1. PREMIQUE [Suspect]
     Dosage: UNKNOWN

REACTIONS (2)
  - DRUG WITHDRAWAL SYNDROME [None]
  - OEDEMA PERIPHERAL [None]
